FAERS Safety Report 18697001 (Version 9)
Quarter: 2021Q2

REPORT INFORMATION
  Report Type: Report from Study
  Country: JP (occurrence: JP)
  Receive Date: 20210104
  Receipt Date: 20210624
  Transmission Date: 20210717
  Serious: Yes (Hospitalization, Other)
  Sender: FDA-Public Use
  Company Number: JP-PFIZER INC-2020516524

PATIENT
  Age: 71 Year
  Sex: Female

DRUGS (7)
  1. PREDONINE [Concomitant]
     Active Substance: PREDNISOLONE
     Dosage: 30 MG
     Route: 042
  2. MEKTOVI [Suspect]
     Active Substance: BINIMETINIB
     Indication: MALIGNANT MELANOMA
     Dosage: 45 MG
     Route: 048
     Dates: start: 20200904, end: 202104
  3. OPDIVO [Suspect]
     Active Substance: NIVOLUMAB
     Indication: MALIGNANT MELANOMA
     Dosage: UNK
     Route: 041
     Dates: start: 201811, end: 201911
  4. OPDIVO [Suspect]
     Active Substance: NIVOLUMAB
     Dosage: 80 MG
     Route: 041
     Dates: start: 202006, end: 202008
  5. PREDONINE [Concomitant]
     Active Substance: PREDNISOLONE
     Indication: PEMPHIGOID
     Dosage: 10 MG, EVERYDAY
     Route: 042
  6. BRAFTOVI [Suspect]
     Active Substance: ENCORAFENIB
     Indication: MALIGNANT MELANOMA
     Dosage: 450 MG
     Route: 048
     Dates: start: 20200904, end: 202104
  7. YERVOY [Suspect]
     Active Substance: IPILIMUMAB
     Indication: MALIGNANT MELANOMA
     Dosage: 3 MG/KG
     Route: 041
     Dates: start: 202006, end: 202008

REACTIONS (6)
  - Ascites [Unknown]
  - Anaemia [Unknown]
  - Hypoalbuminaemia [Recovered/Resolved]
  - Generalised oedema [Unknown]
  - Colitis ulcerative [Recovered/Resolved]
  - Pleural effusion [Unknown]

NARRATIVE: CASE EVENT DATE: 20201217
